FAERS Safety Report 8193783 (Version 12)
Quarter: 2013Q3

REPORT INFORMATION
  Report Type: Spontaneous
  Country: None (occurrence: None)
  Receive Date: 20111012
  Receipt Date: 20130711
  Transmission Date: 20140515
  Serious: Yes (Hospitalization)
  Sender: FDA-Public Use
  Company Number: 2011100037

PATIENT
  Age: 45 Year
  Sex: Male

DRUGS (32)
  1. TORSEMIDE [Suspect]
     Indication: PRODUCT USED FOR UNKNOWN INDICATION
     Dates: start: 20100108, end: 20110509
  2. TORSEMIDE [Suspect]
     Dates: start: 20100108, end: 20110509
  3. ALEGLITAZAR [Suspect]
     Indication: CARDIOVASCULAR EVENT PROPHYLAXIS
     Dosage: LAST DOSE PRIOR TO HYPERKALAEMIA: 04JUL2011, DOSE BLINDED, TEMPORARILY INTERRUPTED
     Route: 048
     Dates: start: 20110215, end: 20110715
  4. SPIRONOLACTONE [Suspect]
     Indication: PRODUCT USED FOR UNKNOWN INDICATION
     Dates: start: 20110504, end: 20110506
  5. ASPIRIN (ACETYLSALICYLIC ACID) [Concomitant]
  6. CLOPIDOGREL BISULFATE [Concomitant]
  7. NEBIVOLOL HYDROCHLORIDE [Concomitant]
  8. AMLODIPINE [Concomitant]
  9. ALLOPURINOL [Concomitant]
  10. INEGY (EZETIMIBE, SIMVASTATIN) [Concomitant]
  11. PANTOPRAZOLE [Concomitant]
  12. METFORMIN HYDROCHLORIDE [Concomitant]
  13. LEVEMIR [Concomitant]
  14. LIPROLOG (LISPRO INSULIN) [Concomitant]
  15. OMEGA-3 ACID ETHYL ESTERS (OMEGA-3 ACID ETHYL ESTERS) [Concomitant]
  16. VILDAGLIPTIN (VILDAGLIPTIN) [Concomitant]
  17. ALISKIREN (ALISKIREN FUMARATE) [Concomitant]
  18. HYDROCHLOROTHIAZIDE (HYDROCHLOROTHIAZIDE) [Concomitant]
  19. CATAPRESSAN (CLONIDINE HYDROCHLORIDE) [Concomitant]
  20. NITROLINGUAL (NITROGLYCERIN) [Concomitant]
  21. DIOVAN [Concomitant]
  22. TARGIN (NALOXONE HYDROCHLORIDE, OXYCODONE HYDROCHLORIDE) [Concomitant]
  23. TRAMABETA (TRAMADOL HYDROCHLORIDE) [Concomitant]
  24. DELIX (RAMIPRIL) [Concomitant]
  25. PARACODEINE (DIHYDROCODEINE BITARTRATE) [Concomitant]
  26. CORDANUM (TALINOLOL) [Concomitant]
  27. BLOPRESS (CANDESARTAN CILEXETIL) [Concomitant]
  28. TRAMADOL (TRAMADOL) [Concomitant]
  29. OMEPRAZOLE (OMEPRAZOLE) [Concomitant]
  30. CODEINE PHOSPHATE/PARACETAMOL (CODEINE PHOSPHATE, PARACETAMOL) [Concomitant]
  31. EZETIMIBE (EZETIMIBE) (TABLET) [Concomitant]
  32. SIMVASTATIN (SIMVASTATIN) [Concomitant]

REACTIONS (18)
  - Hypertensive crisis [None]
  - Carotid artery stenosis [None]
  - Hypotension [None]
  - Treatment noncompliance [None]
  - Glycosylated haemoglobin increased [None]
  - Nausea [None]
  - Vomiting [None]
  - Hyperkalaemia [None]
  - Hyperglycaemia [None]
  - Fluid intake reduced [None]
  - Renal failure [None]
  - Influenza [None]
  - Vertigo [None]
  - Blood fibrinogen increased [None]
  - Hyperhidrosis [None]
  - Dizziness [None]
  - Gamma-glutamyltransferase increased [None]
  - Blood creatine phosphokinase increased [None]
